FAERS Safety Report 16665828 (Version 2)
Quarter: 2019Q3

REPORT INFORMATION
  Report Type: Spontaneous
  Country: IT (occurrence: IT)
  Receive Date: 20190804
  Receipt Date: 20190827
  Transmission Date: 20191004
  Serious: Yes (Congenital Anomaly)
  Sender: FDA-Public Use
  Company Number: IT-BIOGEN-2019BI00769123

PATIENT
  Age: 0 Day
  Sex: Male

DRUGS (1)
  1. TECFIDERA [Suspect]
     Active Substance: DIMETHYL FUMARATE
     Indication: MATERNAL EXPOSURE TIMING UNSPECIFIED
     Route: 064
     Dates: end: 20181030

REACTIONS (2)
  - Foetal exposure during pregnancy [Recovered/Resolved]
  - Cleft palate [Unknown]

NARRATIVE: CASE EVENT DATE: 20190608
